FAERS Safety Report 8291226-8 (Version None)
Quarter: 2012Q2

REPORT INFORMATION
  Report Type: 
  Country: None (occurrence: None)
  Receive Date: 20120417
  Receipt Date: 20120409
  Transmission Date: 20120825
  Serious: Yes (Hospitalization)
  Sender: FDA-Public Use
  Company Number: US-BAYER-2011-094713

PATIENT
  Age: 42 Year
  Sex: Female
  Weight: 73 kg

DRUGS (16)
  1. MOBIC [Concomitant]
     Dosage: 15 MG, UNK
     Route: 048
     Dates: start: 20090806
  2. DETROL LA [Concomitant]
     Dosage: UNK
     Route: 048
     Dates: start: 20090806
  3. ZINC SULFATE [Concomitant]
     Dosage: UNK
     Dates: start: 20090806
  4. YAZ [Suspect]
  5. XANAX [Concomitant]
     Dosage: 0.5 MG, UNK
     Route: 048
     Dates: start: 20090806
  6. DOXY [DOXYCYCLINE] [Concomitant]
     Dosage: 100 MG, QD
     Route: 048
     Dates: start: 20090806
  7. DROSPIRENONE AND ETHINYL ESTRADIOL [Suspect]
     Dosage: UNK
     Dates: start: 20080101, end: 20090101
  8. ATIVAN [Concomitant]
  9. VENTILAN [SALBUTAMOL] [Concomitant]
  10. YASMIN [Suspect]
     Dosage: UNK
     Dates: start: 20080101, end: 20090101
  11. TRAZODONE HCL [Concomitant]
     Dosage: 5 MG, UNK
     Route: 048
     Dates: start: 20090806
  12. TOPAMAX [Concomitant]
     Dosage: 100 MG, QD
     Route: 048
     Dates: start: 20090806
  13. RELPAX [Concomitant]
     Dosage: UNK
     Dates: start: 20080101
  14. PROTONIX [Concomitant]
     Dosage: UNK
     Route: 048
     Dates: start: 20090806
  15. CELEXA [Concomitant]
     Dosage: 40 MG, QD
     Route: 048
     Dates: start: 20090806
  16. BUSPAR [Concomitant]
     Dosage: UNK
     Route: 048
     Dates: start: 20090806

REACTIONS (5)
  - PULMONARY EMBOLISM [None]
  - PAIN [None]
  - THROMBOSIS [None]
  - DYSPNOEA [None]
  - DEEP VEIN THROMBOSIS [None]
